FAERS Safety Report 16816352 (Version 1)
Quarter: 2019Q3

REPORT INFORMATION
  Report Type: Spontaneous
  Country: US (occurrence: US)
  Receive Date: 20190917
  Receipt Date: 20190917
  Transmission Date: 20191005
  Serious: No
  Sender: FDA-Public Use
  Company Number: US-RECKITT BENCKISER HEALTHCARE INT LIMITED-RB-83457-2019

PATIENT
  Age: 58 Year
  Sex: Male

DRUGS (1)
  1. MUCINEX [Suspect]
     Active Substance: GUAIFENESIN
     Dosage: UNK, BID (EVERY 12 HOURS)
     Route: 065
     Dates: start: 20190129

REACTIONS (1)
  - Drug ineffective [Not Recovered/Not Resolved]
